FAERS Safety Report 17968042 (Version 12)
Quarter: 2023Q2

REPORT INFORMATION
  Report Type: Spontaneous
  Country: US (occurrence: US)
  Receive Date: 20200701
  Receipt Date: 20230529
  Transmission Date: 20230722
  Serious: Yes (Other)
  Sender: FDA-Public Use
  Company Number: US-PFIZER INC-2019332832

PATIENT
  Age: 71 Year
  Sex: Female

DRUGS (1)
  1. XELJANZ XR [Suspect]
     Active Substance: TOFACITINIB CITRATE
     Indication: Arthritis
     Dosage: 11 MG, DAILY (1 TABLET (11 MG TOTAL) BY MOUTH DAILY)
     Route: 048

REACTIONS (18)
  - Blood brain barrier defect [Unknown]
  - Joint arthroplasty [Unknown]
  - Hip arthroplasty [Unknown]
  - Knee arthroplasty [Unknown]
  - Rheumatoid arthritis [Unknown]
  - Musculoskeletal stiffness [Unknown]
  - Pain [Unknown]
  - Hypoaesthesia [Unknown]
  - COVID-19 [Unknown]
  - Asthenia [Unknown]
  - Illness [Unknown]
  - Osteoporosis [Unknown]
  - Inflammation [Unknown]
  - Limb mass [Unknown]
  - Grip strength decreased [Unknown]
  - Swelling [Unknown]
  - Blood pressure fluctuation [Unknown]
  - Amnesia [Unknown]

NARRATIVE: CASE EVENT DATE: 20220101
